FAERS Safety Report 7204129-4 (Version None)
Quarter: 2010Q4

REPORT INFORMATION
  Report Type: 
  Country: None (occurrence: None)
  Receive Date: 20101230
  Receipt Date: 20101222
  Transmission Date: 20110411
  Serious: Yes (Death, Other)
  Sender: FDA-Public Use
  Company Number: JP-ROCHE-738282

PATIENT
  Sex: Female

DRUGS (3)
  1. TOCILIZUMAB [Suspect]
     Indication: CASTLEMAN'S DISEASE
     Route: 042
     Dates: start: 20100409, end: 20100720
  2. TOCILIZUMAB [Suspect]
     Route: 042
     Dates: start: 20100803, end: 20100817
  3. TOCILIZUMAB [Suspect]
     Route: 042
     Dates: start: 20100831

REACTIONS (2)
  - GASTROINTESTINAL PERFORATION [None]
  - LYMPHOMA [None]
